FAERS Safety Report 10150248 (Version 4)
Quarter: 2014Q2

REPORT INFORMATION
  Report Type: Report from Study
  Country: US (occurrence: US)
  Receive Date: 20140502
  Receipt Date: 20140617
  Transmission Date: 20141212
  Serious: Yes (Hospitalization)
  Sender: FDA-Public Use
  Company Number: US-ACTELION-A-US2014-96955

PATIENT
  Age: 74 Year
  Sex: Female

DRUGS (4)
  1. TRACLEER [Suspect]
     Indication: PULMONARY ARTERIAL HYPERTENSION
     Dosage: UNK
     Route: 048
  2. COUMADIN [Concomitant]
  3. REMODULIN [Concomitant]
  4. SILDENAFIL [Concomitant]

REACTIONS (12)
  - Fall [Unknown]
  - Decreased activity [Unknown]
  - Device occlusion [Unknown]
  - Balance disorder [Unknown]
  - Syncope [Unknown]
  - Loss of consciousness [Unknown]
  - Headache [Not Recovered/Not Resolved]
  - Dizziness [Unknown]
  - Asthenia [Unknown]
  - Lethargy [Unknown]
  - Fatigue [Unknown]
  - Feeling abnormal [Unknown]
